FAERS Safety Report 4302377-4 (Version None)
Quarter: 2004Q1

REPORT INFORMATION
  Report Type: 
  Country: None (occurrence: None)
  Receive Date: 20040220
  Receipt Date: 20040205
  Transmission Date: 20041129
  Serious: Yes (Death)
  Sender: FDA-Public Use
  Company Number: F01200400228

PATIENT
  Age: 92 Year
  Sex: Female

DRUGS (11)
  1. ARIXTRA [Suspect]
     Indication: ORTHOPEDIC PROCEDURE
     Dosage: 2.5 MG SUBCUTANEOUS
     Route: 058
     Dates: start: 20031224, end: 20031224
  2. ARIXTRA [Suspect]
     Indication: SURGERY
     Dosage: 2.5 MG SUBCUTANEOUS
     Route: 058
     Dates: start: 20031224, end: 20031224
  3. MODURETIC 5-50 [Concomitant]
  4. ISOTEN (BISOPROLOL FUMARATE) [Concomitant]
  5. DAFLON  (DIOSMIN) [Concomitant]
  6. BURONIL (MELPERONE HYDROCHLORIDE) [Concomitant]
  7. CORVATON (MOLSIDOMIEN) [Concomitant]
  8. LOSEC (OMEPRAZOLE) [Concomitant]
  9. LORAZEPAM [Concomitant]
  10. CIPRAMIL (CITALOPRAM HYDROBROMIDE) [Concomitant]
  11. DEPONIT (GLYCERYL TRINITRATE) [Concomitant]

REACTIONS (5)
  - BLOOD SODIUM INCREASED [None]
  - HAEMOGLOBIN DECREASED [None]
  - RED BLOOD CELL COUNT DECREASED [None]
  - RENAL FAILURE ACUTE [None]
  - SHOCK HAEMORRHAGIC [None]
